FAERS Safety Report 15933797 (Version 2)
Quarter: 2019Q1

REPORT INFORMATION
  Report Type: Spontaneous
  Country: BR (occurrence: BR)
  Receive Date: 20190207
  Receipt Date: 20190214
  Transmission Date: 20190417
  Serious: Yes (Other)
  Sender: FDA-Public Use
  Company Number: BR-ALEXION PHARMACEUTICALS INC.-A201802374

PATIENT
  Age: 87 Year
  Sex: Female

DRUGS (2)
  1. SOLIRIS [Suspect]
     Active Substance: ECULIZUMAB
     Dosage: 900 MG, Q2W
     Route: 042
     Dates: start: 20131017
  2. SOLIRIS [Suspect]
     Active Substance: ECULIZUMAB
     Indication: PAROXYSMAL NOCTURNAL HAEMOGLOBINURIA
     Dosage: 600 MG, QW
     Route: 042
     Dates: start: 20130920, end: 20131010

REACTIONS (12)
  - Decreased appetite [Recovered/Resolved]
  - Syncope [Recovered/Resolved]
  - Nausea [Unknown]
  - Asthenia [Unknown]
  - Hypertension [Unknown]
  - Malaise [Recovered/Resolved]
  - Pharyngeal oedema [Unknown]
  - Laboratory test abnormal [Not Recovered/Not Resolved]
  - Chromaturia [Recovering/Resolving]
  - Ulcer [Unknown]
  - Fatigue [Recovered/Resolved]
  - Dizziness [Unknown]

NARRATIVE: CASE EVENT DATE: 2018
